FAERS Safety Report 12058271 (Version 1)
Quarter: 2016Q1

REPORT INFORMATION
  Report Type: Spontaneous
  Country: DE (occurrence: DE)
  Receive Date: 20160210
  Receipt Date: 20160210
  Transmission Date: 20160526
  Serious: Yes (Life-Threatening, Hospitalization, Disabling, Other)
  Sender: FDA-Public Use
  Company Number: DE-ACCORD-037782

PATIENT
  Age: 73 Year
  Sex: Female
  Weight: 88 kg

DRUGS (8)
  1. COAPROVEL [Concomitant]
     Active Substance: HYDROCHLOROTHIAZIDE\IRBESARTAN
     Indication: HYPERTENSION
     Dosage: COAPROVEL 300 MG/12.5 MG
     Route: 048
  2. EPIRUBICIN [Concomitant]
     Active Substance: EPIRUBICIN
     Indication: BREAST CANCER
     Dosage: 175 MG BZW. 122 MG
     Route: 042
     Dates: start: 20150529, end: 20150731
  3. CITALOPRAM [Concomitant]
     Active Substance: CITALOPRAM HYDROBROMIDE
     Indication: DEPRESSION
     Route: 048
  4. PACLITAXEL/PACLITAXEL LIPOSOME [Suspect]
     Active Substance: PACLITAXEL
     Indication: BREAST CANCER
     Dosage: DAILY DOSE: 115 MG MILLGRAM(S) EVERY WEEKS
     Route: 042
     Dates: start: 20150821, end: 20151106
  5. HERCEPTIN [Suspect]
     Active Substance: TRASTUZUMAB
     Indication: BREAST CANCER
     Dosage: INITIALLY RECEIVED 730 MG FROM 21-AUG-2015
     Dates: start: 20150911, end: 20151113
  6. METOPROLOL. [Concomitant]
     Active Substance: METOPROLOL
     Indication: HYPERTENSION
     Route: 048
  7. REMERGIL [Concomitant]
     Active Substance: MIRTAZAPINE
     Indication: DEPRESSION
     Route: 048
  8. AMLODIPINE [Concomitant]
     Active Substance: AMLODIPINE BESYLATE
     Indication: HYPERTENSION
     Route: 048

REACTIONS (1)
  - Pneumonitis [Not Recovered/Not Resolved]

NARRATIVE: CASE EVENT DATE: 20151120
